FAERS Safety Report 16915155 (Version 11)
Quarter: 2021Q1

REPORT INFORMATION
  Report Type: Spontaneous
  Country: US (occurrence: US)
  Receive Date: 20191014
  Receipt Date: 20210225
  Transmission Date: 20210419
  Serious: Yes (Hospitalization, Other)
  Sender: FDA-Public Use
  Company Number: US-PFIZER INC-2019439918

PATIENT
  Age: 59 Year
  Sex: Female

DRUGS (2)
  1. LYRICA [Suspect]
     Active Substance: PREGABALIN
     Dosage: 25 MG, UNK
  2. LYRICA [Suspect]
     Active Substance: PREGABALIN
     Dosage: UNK

REACTIONS (6)
  - Illness [Unknown]
  - Oral pain [Unknown]
  - Pain in extremity [Unknown]
  - Fall [Unknown]
  - Ligament sprain [Unknown]
  - Thrombosis [Unknown]

NARRATIVE: CASE EVENT DATE: 2017
